FAERS Safety Report 6385254-7 (Version None)
Quarter: 2009Q4

REPORT INFORMATION
  Report Type: 
  Country: None (occurrence: None)
  Receive Date: 20091002
  Receipt Date: 20080728
  Transmission Date: 20100525
  Serious: No
  Sender: FDA-Public Use
  Company Number: US-ASTRAZENECA-2008UW15517

PATIENT
  Age: 77 Year
  Sex: Female
  Weight: 94.8 kg

DRUGS (5)
  1. ARIMIDEX [Suspect]
     Indication: BREAST CANCER FEMALE
     Route: 048
     Dates: start: 20071101
  2. ALLOPURINOL [Concomitant]
  3. IRON TABLET [Concomitant]
  4. LEVOTHYROXINE SODIUM [Concomitant]
  5. TRIAMETRENE [Concomitant]

REACTIONS (5)
  - ASTHENIA [None]
  - CARDIAC DISORDER [None]
  - DYSPNOEA [None]
  - FATIGUE [None]
  - OEDEMA PERIPHERAL [None]
